FAERS Safety Report 7998187-7 (Version None)
Quarter: 2011Q4

REPORT INFORMATION
  Report Type: 
  Country: None (occurrence: None)
  Receive Date: 20111221
  Receipt Date: 20110326
  Transmission Date: 20120403
  Serious: No
  Sender: FDA-Public Use
  Company Number: US-GLAXOSMITHKLINE-A0920774A

PATIENT

DRUGS (2)
  1. TRICOR [Concomitant]
  2. LOVAZA [Suspect]
     Dosage: 4CAP PER DAY
     Route: 065

REACTIONS (3)
  - ABDOMINAL PAIN UPPER [None]
  - MIDDLE INSOMNIA [None]
  - SLEEP DISORDER [None]
